FAERS Safety Report 8067865-6 (Version None)
Quarter: 2012Q1

REPORT INFORMATION
  Report Type: 
  Country: None (occurrence: None)
  Receive Date: 20120124
  Receipt Date: 20120119
  Transmission Date: 20120608
  Serious: Yes (Other)
  Sender: FDA-Public Use
  Company Number: US-ASTRAZENECA-2012SE03812

PATIENT
  Sex: Female

DRUGS (4)
  1. SEROQUEL XR [Suspect]
     Indication: DEPRESSION
     Route: 048
  2. SEROQUEL XR [Suspect]
     Indication: BIPOLAR DISORDER
     Route: 048
  3. SEROQUEL XR [Suspect]
     Indication: INSOMNIA
     Route: 048
  4. SEROQUEL XR [Suspect]
     Indication: ANXIETY
     Route: 048

REACTIONS (3)
  - OFF LABEL USE [None]
  - CEREBROVASCULAR ACCIDENT [None]
  - SOMNOLENCE [None]
